FAERS Safety Report 17836971 (Version 2)
Quarter: 2020Q4

REPORT INFORMATION
  Report Type: Spontaneous
  Country: US (occurrence: US)
  Receive Date: 20200529
  Receipt Date: 20201012
  Transmission Date: 20210113
  Serious: Yes (Other)
  Sender: FDA-Public Use
  Company Number: US-CELLTRION INC.-2020US022587

PATIENT

DRUGS (11)
  1. METHOTREXATE SODIUM. [Suspect]
     Active Substance: METHOTREXATE SODIUM
     Indication: PRODUCT USED FOR UNKNOWN INDICATION
     Dosage: UNK UNK,  WEEKLY [ONCE A WEEK]
     Dates: end: 201912
  2. INFLECTRA [Suspect]
     Active Substance: INFLIXIMAB-DYYB
     Dosage: UNK (THIRD DOSE)
     Route: 065
  3. MERCAPTOPURINE. [Suspect]
     Active Substance: MERCAPTOPURINE
     Indication: PRODUCT USED FOR UNKNOWN INDICATION
     Dosage: UNK UNK, WEEKLY
     Route: 065
     Dates: start: 201912
  4. INFLECTRA [Suspect]
     Active Substance: INFLIXIMAB-DYYB
     Dosage: UNK (SECOND DOSE)
     Route: 065
  5. INFLECTRA [Suspect]
     Active Substance: INFLIXIMAB-DYYB
     Dosage: UNK (FOURTH DOSE)
     Route: 065
  6. INFLECTRA [Suspect]
     Active Substance: INFLIXIMAB-DYYB
     Dosage: UNK
     Route: 065
     Dates: start: 201910
  7. VITAMINS NOS [Concomitant]
     Active Substance: VITAMINS
  8. IRON [Concomitant]
     Active Substance: IRON
  9. INFLECTRA [Suspect]
     Active Substance: INFLIXIMAB-DYYB
     Dosage: 10 MG/KG, MONTHLY (10 MG/KG AT THE END OF JAN 2020, EVERY FOUR WEEKS)
     Route: 065
     Dates: start: 202001
  10. PREDNISONE. [Suspect]
     Active Substance: PREDNISONE
     Indication: PRODUCT USED FOR UNKNOWN INDICATION
     Dosage: UNK (WEANING OFF THE PREDNISONE ON 26 NOV 2019)
     Route: 065
     Dates: end: 20191126
  11. INFLECTRA [Suspect]
     Active Substance: INFLIXIMAB-DYYB
     Indication: COLITIS ULCERATIVE
     Dosage: 5 MG/KG, MONTHLY
     Route: 065
     Dates: start: 20191016

REACTIONS (9)
  - Cytomegalovirus infection [Recovered/Resolved]
  - Therapy non-responder [Unknown]
  - Product prescribing issue [Unknown]
  - C-reactive protein decreased [Unknown]
  - Off label use [Unknown]
  - Drug level decreased [Unknown]
  - Weight decreased [Unknown]
  - Nasopharyngitis [Unknown]
  - Overdose [Unknown]

NARRATIVE: CASE EVENT DATE: 20200211
